FAERS Safety Report 8825419 (Version 1)
Quarter: 2012Q4

REPORT INFORMATION
  Report Type: 
  Country: US (occurrence: US)
  Receive Date: 20121004
  Receipt Date: 20121004
  Transmission Date: 20130627
  Serious: No
  Sender: FDA-Public Use
  Company Number: US-B.I. PHARMACEUTICALS,INC./RIDGEFIELD-2012-BP-23441BP

PATIENT
  Sex: Male
  Weight: 86 kg

DRUGS (14)
  1. COMBIVENT [Suspect]
     Indication: CHRONIC OBSTRUCTIVE PULMONARY DISEASE
     Route: 055
  2. LYRICA [Concomitant]
     Indication: NEUROLOGICAL SYMPTOM
     Route: 048
     Dates: start: 2007
  3. MORPHINE [Concomitant]
     Indication: NEUROPATHY PERIPHERAL
     Dosage: 240 mg
     Route: 048
  4. LISINOPRIL/HCTZ [Concomitant]
     Indication: HYPERTENSION
     Route: 048
  5. ELEMENTAL COPPER 2% [Concomitant]
     Indication: COPPER DEFICIENCY
     Route: 048
  6. NEXIUM [Concomitant]
     Indication: GASTROOESOPHAGEAL REFLUX DISEASE
     Dosage: 40 mg
     Route: 048
  7. MULTIVITAMIN [Concomitant]
     Route: 048
  8. DILAUDID [Concomitant]
     Indication: NEUROPATHY PERIPHERAL
     Dosage: 16 mg
     Route: 048
  9. XANAX [Concomitant]
     Indication: DEPRESSION
     Dosage: 1 mg
     Route: 048
  10. VITAMIN B-12 [Concomitant]
     Route: 048
  11. MILK THISTLE [Concomitant]
     Dosage: 1000 mg
     Route: 048
  12. ALBUTEROL [Concomitant]
     Route: 055
  13. ADVAIR [Concomitant]
     Indication: ASTHMA
     Route: 055
  14. POTASSIUM GLUCONATE [Concomitant]
     Route: 048

REACTIONS (3)
  - Cough [Recovered/Resolved]
  - Diarrhoea [Recovered/Resolved]
  - Abdominal pain upper [Recovered/Resolved]
